FAERS Safety Report 20168509 (Version 1)
Quarter: 2021Q4

REPORT INFORMATION
  Report Type: Spontaneous
  Country: US (occurrence: None)
  Receive Date: 20211210
  Receipt Date: 20211210
  Transmission Date: 20220304
  Serious: Yes (Other)
  Sender: FDA-Public Use
  Company Number: US-ROCHE-2974457

PATIENT
  Age: 52 Year
  Sex: Female

DRUGS (17)
  1. OCREVUS [Suspect]
     Active Substance: OCRELIZUMAB
     Indication: Product used for unknown indication
     Dosage: HALF DOSE
     Route: 065
  2. TERIFLUNOMIDE [Concomitant]
     Active Substance: TERIFLUNOMIDE
     Indication: Multiple sclerosis
     Route: 048
     Dates: start: 20190209
  3. TERIFLUNOMIDE [Concomitant]
     Active Substance: TERIFLUNOMIDE
     Route: 048
  4. TERIFLUNOMIDE [Concomitant]
     Active Substance: TERIFLUNOMIDE
     Route: 048
     Dates: start: 2019
  5. BACLOFEN [Concomitant]
     Active Substance: BACLOFEN
  6. FIORICET [Concomitant]
     Active Substance: ACETAMINOPHEN\BUTALBITAL\CAFFEINE
  7. FOLIC ACID [Concomitant]
     Active Substance: FOLIC ACID
  8. GABAPENTIN [Concomitant]
     Active Substance: GABAPENTIN
  9. GLATIRAMER [Concomitant]
     Active Substance: GLATIRAMER
  10. HYDROCHLOROTHIAZIDE [Concomitant]
     Active Substance: HYDROCHLOROTHIAZIDE
  11. LEVOCARNITINE [Concomitant]
     Active Substance: LEVOCARNITINE
  12. MINITRAN [Concomitant]
     Active Substance: NITROGLYCERIN
  13. VITAMIN D2 [Concomitant]
     Active Substance: ERGOCALCIFEROL
  14. MINIVELLE [Concomitant]
     Active Substance: ESTRADIOL
  15. CHOLESTYRAMINE [Concomitant]
     Active Substance: CHOLESTYRAMINE
  16. BUTALBITAL;PARACETAMOL [Concomitant]
  17. MODAFINIL [Concomitant]
     Active Substance: MODAFINIL

REACTIONS (11)
  - COVID-19 pneumonia [Unknown]
  - Multiple sclerosis relapse [Unknown]
  - Biliary colic [Not Recovered/Not Resolved]
  - Madarosis [Unknown]
  - Anxiety [Unknown]
  - Decreased interest [Unknown]
  - Feeding disorder [Unknown]
  - Illness [Unknown]
  - Rash [Unknown]
  - Blood pressure increased [Unknown]
  - Diarrhoea [Unknown]

NARRATIVE: CASE EVENT DATE: 20200101
